FAERS Safety Report 9357683 (Version 2)
Quarter: 2013Q2

REPORT INFORMATION
  Report Type: Spontaneous
  Country: US (occurrence: US)
  Receive Date: 20130620
  Receipt Date: 20130627
  Transmission Date: 20140414
  Serious: Yes (Other)
  Sender: FDA-Public Use
  Company Number: US-PFIZER INC-2013184206

PATIENT
  Sex: Female
  Weight: 55.33 kg

DRUGS (4)
  1. LYRICA [Suspect]
     Indication: MIGRAINE
     Dosage: UNK, 3X/DAY
     Route: 048
  2. LYRICA [Suspect]
     Indication: FIBROMYALGIA
     Dosage: UNK
     Route: 048
     Dates: end: 201110
  3. METHADONE [Concomitant]
     Indication: PAIN
     Dosage: 10 MG, 2X/DAY
  4. OXYCODONE [Concomitant]
     Indication: PAIN
     Dosage: UNK, AS NEEDED

REACTIONS (7)
  - Off label use [Unknown]
  - Intentional drug misuse [Unknown]
  - Sedation [Unknown]
  - Migraine [Unknown]
  - Drug ineffective for unapproved indication [Unknown]
  - Drug ineffective [Unknown]
  - Drug intolerance [Unknown]
